FAERS Safety Report 14520008 (Version 1)
Quarter: 2018Q1

REPORT INFORMATION
  Report Type: Spontaneous
  Country: US (occurrence: US)
  Receive Date: 20180212
  Receipt Date: 20180212
  Transmission Date: 20180509
  Serious: Yes (Other)
  Sender: FDA-Public Use
  Company Number: US-ASTRAZENECA-2018SE16403

PATIENT
  Age: 68 Year
  Sex: Female

DRUGS (13)
  1. FLU SHOT [Suspect]
     Active Substance: INFLUENZA VIRUS VACCINE
     Route: 065
  2. ALLEGRA ALLERGY [Suspect]
     Active Substance: FEXOFENADINE HYDROCHLORIDE
     Route: 065
  3. FLUTICASONE. [Suspect]
     Active Substance: FLUTICASONE
     Route: 065
  4. OMNARIS [Suspect]
     Active Substance: CICLESONIDE
     Indication: HEADACHE
     Dosage: 2 SPRAYS IN EACH NOSTRIL, DAILY
     Route: 055
  5. LIDOCAINE. [Suspect]
     Active Substance: LIDOCAINE
     Route: 065
  6. FLONASE [Suspect]
     Active Substance: FLUTICASONE PROPIONATE
     Route: 065
  7. COZAAR [Suspect]
     Active Substance: LOSARTAN POTASSIUM
     Route: 065
  8. MELATONIN [Concomitant]
     Active Substance: MELATONIN
  9. OMNARIS [Suspect]
     Active Substance: CICLESONIDE
     Indication: MULTIPLE ALLERGIES
     Dosage: 2 SPRAYS IN EACH NOSTRIL, DAILY
     Route: 055
  10. ASTELIN [Concomitant]
     Active Substance: AZELASTINE HYDROCHLORIDE
  11. SINGULAIR [Suspect]
     Active Substance: MONTELUKAST SODIUM
     Route: 065
  12. ATROVENT [Suspect]
     Active Substance: IPRATROPIUM BROMIDE
     Route: 065
  13. COZAAR [Suspect]
     Active Substance: LOSARTAN POTASSIUM
     Dosage: REDUCED DOSE BY HALF
     Route: 065

REACTIONS (15)
  - Epistaxis [Unknown]
  - Insomnia [Unknown]
  - Cerebrovascular accident [Unknown]
  - Dizziness [Unknown]
  - Otorrhoea [Unknown]
  - Pain [Recovered/Resolved]
  - Expired product administered [Unknown]
  - Fall [Unknown]
  - Contusion [Unknown]
  - Back pain [Unknown]
  - Ear pain [Unknown]
  - Urticaria [Unknown]
  - Influenza [Unknown]
  - Somnolence [Recovered/Resolved]
  - Hypersensitivity [Unknown]
